FAERS Safety Report 17845952 (Version 1)
Quarter: 2020Q2

REPORT INFORMATION
  Report Type: Spontaneous
  Country: US (occurrence: US)
  Receive Date: 20200601
  Receipt Date: 20200601
  Transmission Date: 20200714
  Serious: Yes (Life-Threatening, Hospitalization)
  Sender: FDA-Public Use
  Company Number: None

PATIENT
  Age: 67 Year
  Sex: Female
  Weight: 73 kg

DRUGS (1)
  1. HYDROXYZINE (HYDROXYZINE PAMOATE 25MG CAP, UD) [Suspect]
     Active Substance: HYDROXYZINE PAMOATE
     Indication: INSOMNIA
     Route: 048
     Dates: start: 20200210, end: 20200217

REACTIONS (2)
  - Anaphylactic reaction [None]
  - Respiratory depression [None]

NARRATIVE: CASE EVENT DATE: 20200217
